FAERS Safety Report 5782000-2 (Version None)
Quarter: 2008Q2

REPORT INFORMATION
  Report Type: 
  Country: None (occurrence: None)
  Receive Date: 20080623
  Receipt Date: 20080123
  Transmission Date: 20081010
  Serious: No
  Sender: FDA-Public Use
  Company Number: US-ASTRAZENECA-2008UW01718

PATIENT
  Age: 26378 Day
  Sex: Female
  Weight: 49.9 kg

DRUGS (6)
  1. RHINOCORT [Suspect]
     Indication: SINUSITIS
     Dosage: TWO SPRAYS DAILY
     Route: 045
     Dates: start: 20080107
  2. LOTREL [Concomitant]
  3. NEXIUM [Concomitant]
  4. FEMARA [Concomitant]
  5. ZOLOFT [Concomitant]
  6. XANAX [Concomitant]

REACTIONS (4)
  - DRY MOUTH [None]
  - EPISTAXIS [None]
  - NASAL DRYNESS [None]
  - ORAL DISCOMFORT [None]
